FAERS Safety Report 7043691-1 (Version None)
Quarter: 2010Q3

REPORT INFORMATION
  Report Type: 
  Country: None (occurrence: None)
  Receive Date: 20100929
  Receipt Date: 20100630
  Transmission Date: 20110219
  Serious: No
  Sender: FDA-Public Use
  Company Number: US-WYE-H15958610

PATIENT
  Age: 42 Year
  Sex: Female
  Weight: 67.19 kg

DRUGS (11)
  1. PRISTIQ [Suspect]
     Indication: DEPRESSION
     Dosage: 50 MG 1X PER 1 DAY
     Dates: start: 20100501
  2. LEVAQUIN [Suspect]
     Indication: URINARY TRACT INFECTION
     Dosage: 500 MG 1X PER 1 DAY
     Dates: start: 20100625, end: 20100630
  3. SKELAXIN [Concomitant]
  4. VALIUM [Concomitant]
  5. AMITRIPTYLINE HYDROCHLORIDE [Concomitant]
  6. VESICARE [Concomitant]
  7. CELEBREX [Concomitant]
  8. PROVENTIL [Concomitant]
  9. ZEGERID [Concomitant]
  10. AMBIEN [Concomitant]
  11. CLONAZEPAM [Concomitant]

REACTIONS (5)
  - CHEST DISCOMFORT [None]
  - DIZZINESS [None]
  - DYSPNOEA [None]
  - FEELING ABNORMAL [None]
  - SOMNOLENCE [None]
